FAERS Safety Report 6068069-9 (Version None)
Quarter: 2009Q1

REPORT INFORMATION
  Report Type: 
  Country: None (occurrence: None)
  Receive Date: 20090121
  Receipt Date: 20080505
  Transmission Date: 20090719
  Serious: Yes (Other)
  Sender: FDA-Public Use
  Company Number: HQWYE450727JUL04

PATIENT
  Age: 60 Year
  Sex: Female

DRUGS (3)
  1. PREMPRO [Suspect]
     Indication: HORMONE REPLACEMENT THERAPY
     Dates: start: 19950101, end: 20020101
  2. PREMARIN [Suspect]
  3. PROVERA [Suspect]

REACTIONS (1)
  - BREAST CANCER [None]
